FAERS Safety Report 20820393 (Version 1)
Quarter: 2022Q2

REPORT INFORMATION
  Report Type: Spontaneous
  Country: US (occurrence: None)
  Receive Date: 20220511
  Receipt Date: 20220511
  Transmission Date: 20220721
  Serious: Yes (Life-Threatening, Disabling, Other)
  Sender: FDA-Public Use
  Company Number: None

PATIENT
  Age: 59 Year
  Sex: Female
  Weight: 76.66 kg

DRUGS (13)
  1. OCREVUS [Suspect]
     Active Substance: OCRELIZUMAB
     Indication: Multiple sclerosis
     Dosage: OTHER FREQUENCY : Q 6 MONTHS;?
     Route: 042
     Dates: start: 2017, end: 20211023
  2. PALONOSETRON [Concomitant]
     Active Substance: PALONOSETRON
  3. FAMOTIDINE [Concomitant]
     Active Substance: FAMOTIDINE
  4. DIPHENHYDRAMINE [Concomitant]
     Active Substance: DIPHENHYDRAMINE
  5. PEMBROLIZUMAB [Concomitant]
     Active Substance: PEMBROLIZUMAB
  6. CARBOPLATIN [Concomitant]
     Active Substance: CARBOPLATIN
  7. PACLITAXEL [Concomitant]
     Active Substance: PACLITAXEL
  8. DEXAMETHASONE [Concomitant]
     Active Substance: DEXAMETHASONE
  9. VITAMIN B12 [Concomitant]
     Active Substance: CYANOCOBALAMIN
  10. BIOTIN [Concomitant]
     Active Substance: BIOTIN
  11. ALPHA LIPOIC ACID [Concomitant]
     Active Substance: .ALPHA.-LIPOIC ACID
  12. VITAMIN D3 [Concomitant]
     Active Substance: CHOLECALCIFEROL
  13. OCREVUS [Suspect]
     Active Substance: OCRELIZUMAB
     Indication: Multiple sclerosis
     Dosage: OTHER FREQUENCY : Q 6 MONTHS;?
     Route: 042
     Dates: start: 2017, end: 20211023

REACTIONS (1)
  - Triple negative breast cancer [None]

NARRATIVE: CASE EVENT DATE: 20220201
